FAERS Safety Report 21795472 (Version 1)
Quarter: 2022Q4

REPORT INFORMATION
  Report Type: Spontaneous
  Country: US (occurrence: None)
  Receive Date: 20221228
  Receipt Date: 20221228
  Transmission Date: 20230113
  Serious: No
  Sender: FDA-Public Use
  Company Number: None

PATIENT
  Sex: Female

DRUGS (1)
  1. OPSUMIT [Suspect]
     Active Substance: MACITENTAN
     Indication: Pulmonary arterial hypertension
     Dosage: 10MG DAILY PO?
     Route: 048
     Dates: start: 20190411

REACTIONS (4)
  - Cellulitis [None]
  - Pyrexia [None]
  - Peripheral swelling [None]
  - Pain in extremity [None]
